FAERS Safety Report 15516919 (Version 2)
Quarter: 2020Q1

REPORT INFORMATION
  Report Type: Spontaneous
  Country: CA (occurrence: CA)
  Receive Date: 20181017
  Receipt Date: 20200318
  Transmission Date: 20200409
  Serious: Yes (Other)
  Sender: FDA-Public Use
  Company Number: CA-GLAXOSMITHKLINE-CA2018188063

PATIENT
  Age: 58 Year
  Sex: Male

DRUGS (9)
  1. LANOXIN [Concomitant]
     Active Substance: DIGOXIN
     Indication: MYOCARDIAL ISCHAEMIA
     Dosage: 0.25 MG, QID
     Route: 065
  2. NOVASEN [Concomitant]
     Indication: CEREBROVASCULAR ACCIDENT
     Dosage: UNK
     Route: 048
  3. SLOW K [Concomitant]
     Active Substance: POTASSIUM CHLORIDE
     Indication: MYOCARDITIS
     Dosage: 1.0 DOSAGE FORMS
     Route: 048
  4. LASIX [Concomitant]
     Active Substance: FUROSEMIDE
     Indication: MYOCARDIAL ISCHAEMIA
     Dosage: 40 MG, BID
     Route: 065
  5. LASIX [Concomitant]
     Active Substance: FUROSEMIDE
     Indication: MYOCARDITIS
  6. LANOXIN [Concomitant]
     Active Substance: DIGOXIN
     Indication: MYOCARDITIS
  7. NICORETTE [Suspect]
     Active Substance: NICOTINE
     Indication: SMOKING CESSATION THERAPY
     Dosage: 1.0 TEASPOONFUL, 2 MGX10
     Route: 048
     Dates: start: 19810119, end: 19810126
  8. SLOW K [Concomitant]
     Active Substance: POTASSIUM CHLORIDE
     Indication: MYOCARDIAL ISCHAEMIA
  9. ALUPENT [Concomitant]
     Active Substance: METAPROTERENOL SULFATE
     Indication: ASTHMA
     Dosage: 20 MG, TID
     Route: 065

REACTIONS (1)
  - Haemoptysis [Recovered/Resolved]

NARRATIVE: CASE EVENT DATE: 19810126
